FAERS Safety Report 11471494 (Version 2)
Quarter: 2015Q3

REPORT INFORMATION
  Report Type: Spontaneous
  Country: US (occurrence: US)
  Receive Date: 20150903
  Receipt Date: 20150903
  Transmission Date: 20151125
  Serious: Yes (Other)
  Sender: FDA-Public Use
  Company Number: US-ELI_LILLY_AND_COMPANY-US201202007665

PATIENT
  Age: 77 Year
  Sex: Female

DRUGS (1)
  1. CYMBALTA [Suspect]
     Active Substance: DULOXETINE HYDROCHLORIDE
     Indication: PAIN
     Dosage: 30 MG, QD
     Dates: start: 20120210

REACTIONS (9)
  - Constipation [Unknown]
  - Nausea [Unknown]
  - Bowel movement irregularity [Unknown]
  - Rectal haemorrhage [Unknown]
  - Fatigue [Unknown]
  - Abdominal distension [Recovering/Resolving]
  - Haemorrhoids [Recovering/Resolving]
  - Abdominal discomfort [Recovering/Resolving]
  - Insomnia [Unknown]

NARRATIVE: CASE EVENT DATE: 201202
